FAERS Safety Report 11837325 (Version 2)
Quarter: 2016Q1

REPORT INFORMATION
  Report Type: Spontaneous
  Country: US (occurrence: US)
  Receive Date: 20151215
  Receipt Date: 20160216
  Transmission Date: 20160525
  Serious: No
  Sender: FDA-Public Use
  Company Number: US-LEO PHARMA-239001

PATIENT
  Age: 62 Year
  Sex: Male

DRUGS (1)
  1. PICATO [Suspect]
     Active Substance: INGENOL MEBUTATE
     Indication: PRECANCEROUS SKIN LESION
     Dates: start: 20151130, end: 20151202

REACTIONS (3)
  - Application site exfoliation [Recovered/Resolved]
  - Application site dryness [Recovered/Resolved]
  - Drug administered at inappropriate site [Unknown]

NARRATIVE: CASE EVENT DATE: 20151130
